FAERS Safety Report 8610803-5 (Version None)
Quarter: 2012Q3

REPORT INFORMATION
  Report Type: 
  Country: None (occurrence: None)
  Receive Date: 20120822
  Receipt Date: 20120815
  Transmission Date: 20120928
  Serious: Yes (Other)
  Sender: FDA-Public Use
  Company Number: JP-JNJFOC-20120808794

PATIENT
  Age: 4 Decade
  Sex: Female

DRUGS (1)
  1. TRAMADOL HCL [Suspect]
     Indication: PAIN
     Dosage: 3 TABLETS PER DAY, 3 TIMES DAILY
     Route: 048
     Dates: start: 20120401, end: 20120701

REACTIONS (1)
  - ALOPECIA [None]
